FAERS Safety Report 16401563 (Version 1)
Quarter: 2019Q2

REPORT INFORMATION
  Report Type: Spontaneous
  Country: US (occurrence: US)
  Receive Date: 20190606
  Receipt Date: 20190606
  Transmission Date: 20190711
  Serious: No
  Sender: FDA-Public Use
  Company Number: US-ARRAY-2019-05637

PATIENT

DRUGS (9)
  1. MEKTOVI [Suspect]
     Active Substance: BINIMETINIB
     Indication: PANCREATIC CARCINOMA
     Dosage: 45 MG, BID
  2. TRINTELLIX [Concomitant]
     Active Substance: VORTIOXETINE HYDROBROMIDE
     Indication: DEPRESSION
     Dosage: 20 MG, QD
  3. ATORVASTATIN [Concomitant]
     Active Substance: ATORVASTATIN
     Indication: BLOOD CHOLESTEROL INCREASED
     Dosage: 10 MG, QAD
  4. ENOXAPARIN [Concomitant]
     Active Substance: ENOXAPARIN
     Indication: THROMBOSIS
     Dosage: 120 IU, BID
  5. HYDROXYZINE [Concomitant]
     Active Substance: HYDROXYZINE HYDROCHLORIDE
     Indication: MUSCLE RELAXANT THERAPY
     Dosage: 25 MG, QD
  6. CLONAZEPAM. [Concomitant]
     Active Substance: CLONAZEPAM
     Indication: ANXIETY
     Dosage: 1 MG, BID
  7. MEMANTINE. [Concomitant]
     Active Substance: MEMANTINE
     Dosage: 5 MG, BID
     Dates: start: 20190519, end: 20190524
  8. BRAFTOVI [Suspect]
     Active Substance: ENCORAFENIB
     Indication: PANCREATIC CARCINOMA
     Dosage: UNK
  9. MEMANTINE. [Concomitant]
     Active Substance: MEMANTINE
     Indication: COGNITIVE DISORDER
     Dosage: 5 MG, QD
     Dates: start: 20190512, end: 20190518

REACTIONS (7)
  - Fatigue [Not Recovered/Not Resolved]
  - Product use in unapproved indication [Unknown]
  - Headache [Not Recovered/Not Resolved]
  - Diarrhoea [Not Recovered/Not Resolved]
  - Acne [Not Recovered/Not Resolved]
  - Nausea [Not Recovered/Not Resolved]
  - Weight increased [Not Recovered/Not Resolved]
